FAERS Safety Report 17806803 (Version 1)
Quarter: 2020Q2

REPORT INFORMATION
  Report Type: Spontaneous
  Country: US (occurrence: US)
  Receive Date: 20200519
  Receipt Date: 20200519
  Transmission Date: 20200714
  Serious: No
  Sender: FDA-Public Use
  Company Number: None

PATIENT
  Sex: Male

DRUGS (1)
  1. REMICADE [Suspect]
     Active Substance: INFLIXIMAB
     Indication: CROHN^S DISEASE
     Dosage: ?          OTHER STRENGTH:100MG/VL;OTHER FREQUENCY:EVERY 8 WEEKS;?
     Route: 042
     Dates: start: 20170113

REACTIONS (6)
  - Headache [None]
  - Oropharyngeal pain [None]
  - Body temperature increased [None]
  - Rash [None]
  - Rhinorrhoea [None]
  - Cough [None]
